FAERS Safety Report 23566380 (Version 1)
Quarter: 2024Q1

REPORT INFORMATION
  Report Type: Spontaneous
  Country: BE (occurrence: BE)
  Receive Date: 20240226
  Receipt Date: 20240226
  Transmission Date: 20240409
  Serious: Yes (Hospitalization, Other)
  Sender: FDA-Public Use
  Company Number: BE-009507513-2312BEL006644

PATIENT
  Age: 47 Year
  Sex: Female

DRUGS (6)
  1. CYCLOPHOSPHAMIDE [Suspect]
     Active Substance: CYCLOPHOSPHAMIDE
     Indication: Triple negative breast cancer
     Dosage: UNK, Q2W(4 WEEKS)
     Route: 065
     Dates: start: 202302, end: 2023
  2. CARBOPLATIN [Suspect]
     Active Substance: CARBOPLATIN
     Indication: Triple negative breast cancer
     Dosage: AUC 1.5, QW(12 WEEKS)
     Route: 065
     Dates: start: 202211, end: 202302
  3. EPIRUBICIN [Suspect]
     Active Substance: EPIRUBICIN
     Indication: Triple negative breast cancer
     Dosage: UNK
     Route: 065
     Dates: start: 202302, end: 2023
  4. PACLITAXEL [Suspect]
     Active Substance: PACLITAXEL
     Indication: Triple negative breast cancer
     Dosage: 80 MILLIGRAM/SQ. METER, QW(12 WEEKS)
     Route: 065
     Dates: start: 202211, end: 202302
  5. PEMBROLIZUMAB [Suspect]
     Active Substance: PEMBROLIZUMAB
     Dosage: 200 MILLIGRAM, 6XQ3W NEOADJUVANT TREATMENT
     Route: 065
     Dates: start: 202211, end: 2023
  6. PEMBROLIZUMAB [Suspect]
     Active Substance: PEMBROLIZUMAB
     Indication: Triple negative breast cancer
     Dosage: 200 MILLIGRAM, Q3W ADJUVANT TREATMENT
     Route: 065
     Dates: start: 202303, end: 202310

REACTIONS (8)
  - Febrile neutropenia [Unknown]
  - Urinary tract infection [Unknown]
  - Hypothyroidism [Unknown]
  - Polyneuropathy [Unknown]
  - Colitis microscopic [Unknown]
  - Thyroiditis [Unknown]
  - Gastritis [Unknown]
  - Product use issue [Unknown]

NARRATIVE: CASE EVENT DATE: 20230101
